FAERS Safety Report 8429610-1 (Version None)
Quarter: 2012Q2

REPORT INFORMATION
  Report Type: 
  Country: None (occurrence: None)
  Receive Date: 20120612
  Receipt Date: 20120611
  Transmission Date: 20120825
  Serious: Yes (Death, Hospitalization)
  Sender: FDA-Public Use
  Company Number: PHHY2012BE049140

PATIENT
  Sex: Male

DRUGS (1)
  1. ZOLEDRONOC ACID [Suspect]
     Indication: OSTEOPOROSIS
     Dosage: 5 MG, UNK
     Route: 042
     Dates: start: 20110708

REACTIONS (5)
  - LUNG INFECTION [None]
  - CARDIAC FAILURE [None]
  - PYREXIA [None]
  - ARTERITIS [None]
  - FEMORAL ARTERY OCCLUSION [None]
